FAERS Safety Report 10541207 (Version 1)
Quarter: 2014Q4

REPORT INFORMATION
  Report Type: Spontaneous
  Country: US (occurrence: None)
  Receive Date: 20141010
  Receipt Date: 20141010
  Transmission Date: 20150529
  Serious: Yes (Hospitalization)
  Sender: FDA-Public Use
  Company Number: 163-POMAL-14051308

PATIENT
  Age: 60 Year
  Sex: Male
  Weight: 81.4 kg

DRUGS (9)
  1. DEXAMETHASONE (DEXAMETHASONE) (UNKNOWN) [Concomitant]
     Active Substance: DEXAMETHASONE
  2. ACYCLOVIR (ACICLOVIR) (UNKNOWN) [Concomitant]
  3. LEXAPRO (ESCITALOPRAM OXALATE) (UNKNOWN) [Concomitant]
  4. OXYCODONE (OXYCODONE) (UNKNOWN) (OXYCODONE) [Concomitant]
     Active Substance: OXYCODONE
  5. POMALYST [Suspect]
     Active Substance: POMALIDOMIDE
     Indication: PLASMA CELL MYELOMA
     Dosage: 4 MG, 21 IN 28 D, PO?
     Route: 048
     Dates: start: 201402
  6. NEXIUM (ESOMEPRAZOLE) (UNKNOWN) [Concomitant]
  7. OXYCONTIN [Concomitant]
     Active Substance: OXYCODONE HYDROCHLORIDE
  8. XANAX (ALPRAZOLAM) (UNKNOWN) [Concomitant]
  9. KYPROLIS [Concomitant]
     Active Substance: CARFILZOMIB

REACTIONS (2)
  - Hypercalcaemia [None]
  - Plasma cell myeloma [None]

NARRATIVE: CASE EVENT DATE: 20140423
